FAERS Safety Report 6257143-X (Version None)
Quarter: 2009Q3

REPORT INFORMATION
  Report Type: 
  Country: None (occurrence: None)
  Receive Date: 20090706
  Receipt Date: 20090406
  Transmission Date: 20100115
  Serious: No
  Sender: FDA-Public Use
  Company Number: US-BAYER-200918280NA

PATIENT
  Age: 60 Year
  Sex: Female

DRUGS (2)
  1. ULTRAVIST 240 [Suspect]
     Indication: COMPUTERISED TOMOGRAM ABDOMEN
     Dosage: TOTAL DAILY DOSE: 186 ML
     Route: 042
     Dates: start: 20090319, end: 20090319
  2. UNKNOWN CONTRAST [Concomitant]
     Route: 048
     Dates: start: 20090319, end: 20090319

REACTIONS (2)
  - ERYTHEMA [None]
  - URTICARIA [None]
